FAERS Safety Report 5195007-3 (Version None)
Quarter: 2006Q4

REPORT INFORMATION
  Report Type: 
  Country: None (occurrence: None)
  Receive Date: 20061229
  Receipt Date: 20061030
  Transmission Date: 20070319
  Serious: Yes (Other)
  Sender: FDA-Public Use
  Company Number: JP-MERCK-0611USA00772

PATIENT
  Age: 76 Year
  Sex: Male
  Weight: 58 kg

DRUGS (10)
  1. FOSAMAX [Suspect]
     Indication: OSTEOPOROSIS
     Route: 048
     Dates: start: 20060919, end: 20061030
  2. FOSAMAX [Suspect]
     Route: 048
     Dates: start: 20051209, end: 20051224
  3. MEDROL [Suspect]
     Indication: ANTIINFLAMMATORY THERAPY
     Route: 048
     Dates: start: 20040720
  4. VOLTAREN [Suspect]
     Indication: INFLAMMATION
     Route: 048
     Dates: start: 20060301, end: 20061113
  5. VOLTAREN [Suspect]
     Route: 048
     Dates: start: 20061116
  6. RIMATIL [Concomitant]
     Indication: RHEUMATOID ARTHRITIS
     Route: 048
     Dates: start: 20000524
  7. CALCIUM LACTATE [Concomitant]
     Indication: OSTEOPOROSIS
     Route: 054
     Dates: start: 20061012
  8. ONEALFA [Concomitant]
     Indication: OSTEOPOROSIS
     Route: 048
     Dates: start: 20041012
  9. ELCITONIN [Concomitant]
     Indication: PAIN
     Route: 030
     Dates: start: 20051115
  10. RISEDRONATE SODIUM [Suspect]
     Indication: OSTEOPOROSIS
     Route: 065
     Dates: start: 20060316, end: 20060919

REACTIONS (6)
  - ABDOMINAL PAIN UPPER [None]
  - BLISTER [None]
  - GASTRIC ULCER [None]
  - HAEMOGLOBIN DECREASED [None]
  - STOMATITIS [None]
  - SUBILEUS [None]
